FAERS Safety Report 24421171 (Version 2)
Quarter: 2024Q4

REPORT INFORMATION
  Report Type: Spontaneous
  Country: GB (occurrence: GB)
  Receive Date: 20241010
  Receipt Date: 20241011
  Transmission Date: 20250115
  Serious: Yes (Other)
  Sender: ALK-ABELLO
  Company Number: None

PATIENT

DRUGS (4)
  1. GRAZAX [Suspect]
     Active Substance: PHLEUM PRATENSE POLLEN
     Indication: Conjunctivitis allergic
     Dosage: 75,000 SQ-T
     Dates: start: 20240927, end: 20241001
  2. FLUTICASONE FUROATE [Concomitant]
     Active Substance: FLUTICASONE FUROATE
     Indication: Conjunctivitis allergic
  3. FEXOFENADINE [Concomitant]
     Active Substance: FEXOFENADINE HYDROCHLORIDE
     Indication: Conjunctivitis allergic
  4. CROMOLYN SODIUM [Concomitant]
     Active Substance: CROMOLYN SODIUM
     Indication: Conjunctivitis allergic

REACTIONS (6)
  - Blindness transient [Recovered/Resolved]
  - Periorbital swelling [Recovered/Resolved]
  - Mydriasis [Recovered/Resolved]
  - Pallor [Recovered/Resolved]
  - Throat irritation [Recovered/Resolved]
  - Oral pruritus [Recovered/Resolved]

NARRATIVE: CASE EVENT DATE: 20240928
